FAERS Safety Report 10041904 (Version 2)
Quarter: 2014Q2

REPORT INFORMATION
  Report Type: Spontaneous
  Country: US (occurrence: US)
  Receive Date: 20140327
  Receipt Date: 20140401
  Transmission Date: 20141212
  Serious: Yes (Other)
  Sender: FDA-Public Use
  Company Number: US-BAXTER-2014BAX014465

PATIENT
  Age: 49 Year
  Sex: Female

DRUGS (14)
  1. GAMMAGARD LIQUID [Suspect]
     Indication: IMMUNODEFICIENCY COMMON VARIABLE
     Dosage: PRESCRIBED AS 1 GRAM DAILY OVER A DURATION OF 30 MINUTES FOR 5 DAYS; ADMINISTERED SUBCUTANEOUSLY TO
     Route: 058
     Dates: start: 201403
  2. GAMMAGARD LIQUID [Suspect]
     Indication: HYPOGAMMAGLOBULINAEMIA
  3. HIZENTRA [Concomitant]
     Indication: IMMUNODEFICIENCY COMMON VARIABLE
     Dosage: PAST MEDICATION
     Route: 058
  4. GAMUNEX-C [Concomitant]
     Indication: IMMUNODEFICIENCY COMMON VARIABLE
     Dosage: PAST MEDICATION: INFUSED TO 4 SUBCUTANEOUS SITES OVER A DURATION OF ONE HOUR
     Route: 058
  5. BENADRYL [Concomitant]
     Indication: PREMEDICATION
     Dosage: PAST MEDICATION: PRIOR TO GAMUNEX-C ADMINISTRATION
     Route: 048
  6. BENADRYL [Concomitant]
     Indication: WHEEZING
     Dosage: PAST MEDICATION: AS TREATMENT FOR WHEEZING, SHORTNESS OF BREATH, AND EPIGLOTTIS AFTER GAMUNEX-C ADMI
     Route: 048
  7. BENADRYL [Concomitant]
     Indication: DYSPNOEA
     Dosage: PREMEDICATION TO GGL ADMINISTRATION
     Route: 048
  8. BENADRYL [Concomitant]
     Indication: LARYNGEAL DISORDER
  9. TYLENOL [Concomitant]
     Indication: PREMEDICATION
     Dosage: PAST MEDICATION
     Route: 048
  10. PREDNISONE [Concomitant]
     Indication: WHEEZING
     Dosage: PAST MEDICATION: AS TREATMENT FOR WHEEZING, SHORTNESS OF BREATH, AND EPIGLOTTIS AFTER GAMUNEX-C ADMI
     Route: 048
  11. PREDNISONE [Concomitant]
     Indication: DYSPNOEA
     Dosage: FOR ASTHMA MAINTENANCE
     Route: 065
  12. PREDNISONE [Concomitant]
     Indication: LARYNGEAL DISORDER
  13. PREDNISONE [Concomitant]
     Indication: ASTHMA
  14. CLARITIN [Concomitant]
     Indication: ASTHMA
     Route: 065

REACTIONS (7)
  - Upper airway obstruction [Recovered/Resolved]
  - Wheezing [Recovered/Resolved]
  - Dyspnoea [Recovered/Resolved]
  - Laryngeal disorder [Recovered/Resolved]
  - Pruritus [Recovered/Resolved]
  - Paraesthesia oral [Recovered/Resolved]
  - Chest discomfort [Recovered/Resolved]
